FAERS Safety Report 9278741 (Version 2)
Quarter: 2014Q2

REPORT INFORMATION
  Report Type: Spontaneous
  Country: US (occurrence: US)
  Receive Date: 20130508
  Receipt Date: 20140401
  Transmission Date: 20141212
  Serious: No
  Sender: FDA-Public Use
  Company Number: US-ASTRAZENECA-2013SE29972

PATIENT
  Age: 63 Year
  Sex: Female
  Weight: 83.9 kg

DRUGS (5)
  1. NEXIUM [Suspect]
     Indication: GASTROOESOPHAGEAL REFLUX DISEASE
     Route: 048
     Dates: end: 2008
  2. ASTRPRO [Concomitant]
     Dosage: 205.5MCG/30ML DAILY
     Route: 045
     Dates: start: 20130425
  3. MONGETELAKET [Concomitant]
     Route: 048
     Dates: start: 201302, end: 201303
  4. PANTOPRAZOLE [Concomitant]
     Route: 048
     Dates: start: 201209, end: 20130424
  5. CITALOPRAM [Concomitant]

REACTIONS (3)
  - Dyspepsia [Unknown]
  - Hyperkeratosis [Unknown]
  - Intentional product misuse [Unknown]
